FAERS Safety Report 24729771 (Version 1)
Quarter: 2024Q4

REPORT INFORMATION
  Report Type: Spontaneous
  Country: CN (occurrence: CN)
  Receive Date: 20241213
  Receipt Date: 20241213
  Transmission Date: 20250114
  Serious: Yes (Other)
  Sender: NOVARTIS
  Company Number: CN-002147023-NVSC2024CN234878

PATIENT
  Age: 75 Year
  Sex: Female
  Weight: 42 kg

DRUGS (1)
  1. SACUBITRIL\VALSARTAN [Suspect]
     Active Substance: SACUBITRIL\VALSARTAN
     Indication: Cardiac failure
     Dosage: 0.025 G, QD
     Route: 048
     Dates: start: 20241130, end: 20241130

REACTIONS (5)
  - Hypertension [Recovering/Resolving]
  - Arrhythmia [Recovering/Resolving]
  - Dizziness [Recovered/Resolved]
  - Heart rate increased [Recovering/Resolving]
  - Cardiac disorder [Recovering/Resolving]

NARRATIVE: CASE EVENT DATE: 20241130
